FAERS Safety Report 4316168-1 (Version None)
Quarter: 2004Q1

REPORT INFORMATION
  Report Type: 
  Country: None (occurrence: None)
  Receive Date: 20040312
  Receipt Date: 20031028
  Transmission Date: 20041129
  Serious: Yes (Hospitalization)
  Sender: FDA-Public Use
  Company Number: US-BRISTOL-MYERS SQUIBB COMPANY-12420303

PATIENT
  Age: 80 Year
  Sex: Male

DRUGS (4)
  1. COUMADIN [Suspect]
  2. ZOLEDRONATE [Concomitant]
     Indication: OSTEOPOROSIS
     Dates: start: 20020827
  3. CALCIUM [Concomitant]
  4. ERGOCALCIFEROL [Concomitant]

REACTIONS (21)
  - ARRHYTHMIA [None]
  - ASTHENIA [None]
  - ATRIAL FIBRILLATION [None]
  - BUNDLE BRANCH BLOCK RIGHT [None]
  - CARDIAC FAILURE CONGESTIVE [None]
  - CHILLS [None]
  - COAGULOPATHY [None]
  - DIARRHOEA [None]
  - DILATATION ATRIAL [None]
  - HEART RATE IRREGULAR [None]
  - HYPOCALCAEMIA [None]
  - HYPOPHOSPHATAEMIA [None]
  - MALIGNANT NEOPLASM PROGRESSION [None]
  - MALIGNANT PLEURAL EFFUSION [None]
  - METASTATIC NEOPLASM [None]
  - PAIN IN EXTREMITY [None]
  - PANCYTOPENIA [None]
  - PULMONARY ARTERIAL PRESSURE ABNORMAL [None]
  - PULMONARY CONGESTION [None]
  - VENTRICULAR HYPERTROPHY [None]
  - WHEEZING [None]
